FAERS Safety Report 20109367 (Version 3)
Quarter: 2021Q4

REPORT INFORMATION
  Report Type: Spontaneous
  Country: JP (occurrence: JP)
  Receive Date: 20211124
  Receipt Date: 20211216
  Transmission Date: 20220304
  Serious: No
  Sender: FDA-Public Use
  Company Number: JP-Eisai-202108700_FYC_P_1

PATIENT
  Sex: Female

DRUGS (1)
  1. FYCOMPA [Suspect]
     Active Substance: PERAMPANEL
     Indication: Juvenile myoclonic epilepsy
     Dosage: DOSE UNKNOWN
     Route: 048

REACTIONS (2)
  - Motor dysfunction [Unknown]
  - Off label use [Unknown]
